FAERS Safety Report 15720747 (Version 2)
Quarter: 2018Q4

REPORT INFORMATION
  Report Type: Spontaneous
  Country: GB (occurrence: GB)
  Receive Date: 20181213
  Receipt Date: 20181217
  Transmission Date: 20190205
  Serious: Yes (Other)
  Sender: FDA-Public Use
  Company Number: GB-JNJFOC-20181211272

PATIENT
  Age: 4 Year
  Sex: Male
  Weight: 21.8 kg

DRUGS (1)
  1. PARACETAMOL [Suspect]
     Active Substance: ACETAMINOPHEN
     Indication: PRODUCT USED FOR UNKNOWN INDICATION
     Route: 048
     Dates: start: 20181120, end: 20181120

REACTIONS (5)
  - Urticaria [Recovered/Resolved]
  - Swelling face [Unknown]
  - Vomiting [Unknown]
  - Allergic reaction to excipient [Unknown]
  - Peripheral swelling [Unknown]

NARRATIVE: CASE EVENT DATE: 20181120
